FAERS Safety Report 4614192-2 (Version None)
Quarter: 2005Q1

REPORT INFORMATION
  Report Type: 
  Country: None (occurrence: None)
  Receive Date: 20050315
  Receipt Date: 20050302
  Transmission Date: 20050727
  Serious: Yes (Other)
  Sender: FDA-Public Use
  Company Number: 2005040373

PATIENT

DRUGS (1)
  1. BEXTRA [Suspect]
     Indication: ARTHRITIS
     Dates: start: 20041001

REACTIONS (3)
  - EYE SWELLING [None]
  - OEDEMA PERIPHERAL [None]
  - RASH PAPULAR [None]
